FAERS Safety Report 13214447 (Version 1)
Quarter: 2017Q1

REPORT INFORMATION
  Report Type: Spontaneous
  Country: US (occurrence: US)
  Receive Date: 20170210
  Receipt Date: 20170210
  Transmission Date: 20170428
  Serious: Yes (Hospitalization, Other)
  Sender: FDA-Public Use
  Company Number: US-ELI_LILLY_AND_COMPANY-US201702001973

PATIENT
  Age: 77 Year
  Sex: Female

DRUGS (10)
  1. LEVEMIR [Suspect]
     Active Substance: INSULIN DETEMIR
     Indication: TYPE 1 DIABETES MELLITUS
     Dosage: UNK, UNKNOWN
     Route: 065
  2. SIMVASTATIN. [Concomitant]
     Active Substance: SIMVASTATIN
  3. PHENYTOIN. [Concomitant]
     Active Substance: PHENYTOIN
  4. HUMULIN N [Suspect]
     Active Substance: INSULIN HUMAN
     Dosage: 8 U, QD
     Route: 065
     Dates: start: 1992, end: 20170130
  5. BYSTOLIC [Concomitant]
     Active Substance: NEBIVOLOL HYDROCHLORIDE
  6. LEVOTHYROXINE. [Concomitant]
     Active Substance: LEVOTHYROXINE
  7. HUMULIN N [Suspect]
     Active Substance: INSULIN HUMAN
     Indication: TYPE 1 DIABETES MELLITUS
     Dosage: 28 U, EACH MORNING
     Route: 065
     Dates: start: 1992, end: 20170130
  8. LOSARTAN. [Concomitant]
     Active Substance: LOSARTAN
  9. ANASTROZOLE. [Concomitant]
     Active Substance: ANASTROZOLE
  10. VITAMIN D [Concomitant]
     Active Substance: CHOLECALCIFEROL

REACTIONS (5)
  - Tendon rupture [Recovered/Resolved]
  - Blood glucose increased [Unknown]
  - Breast cancer [Unknown]
  - Ankle fracture [Recovered/Resolved]
  - Glycosylated haemoglobin increased [Unknown]

NARRATIVE: CASE EVENT DATE: 201604
